FAERS Safety Report 8575842-1 (Version None)
Quarter: 2012Q2

REPORT INFORMATION
  Report Type: 
  Country: None (occurrence: None)
  Receive Date: 20120423
  Receipt Date: 20091207
  Transmission Date: 20120825
  Serious: Yes (Other)
  Sender: FDA-Public Use
  Company Number: PHEH2009US16793

PATIENT
  Age: 65 Year
  Sex: Male

DRUGS (9)
  1. PAXIL [Concomitant]
  2. EXJADE [Suspect]
     Indication: MYELODYSPLASTIC SYNDROME
     Dosage: 2000 MG DAILY, ORAL
     Route: 048
     Dates: start: 20090921
  3. VERAPAMIL - SLOW RELEASE (VERAPAMIL HYDROCHLORIDE) [Concomitant]
  4. DIOVAN [Concomitant]
  5. LOPRESSOR [Concomitant]
  6. CENTRUM SILVER (ASCORBIC ACID,CALCIUM,MINERALS NOS,RETINOL,TOCOPHERYL [Concomitant]
  7. CLARINEX [Concomitant]
  8. EXTRA STRENGTH TYLENOL [Concomitant]
  9. ASCORBIC ACID [Concomitant]

REACTIONS (1)
  - NEOPLASM MALIGNANT [None]
